FAERS Safety Report 16155754 (Version 1)
Quarter: 2019Q2

REPORT INFORMATION
  Report Type: Spontaneous
  Country: IT (occurrence: IT)
  Receive Date: 20190404
  Receipt Date: 20190404
  Transmission Date: 20190711
  Serious: Yes (Other)
  Sender: FDA-Public Use
  Company Number: IT-ROCHE-2294909

PATIENT
  Age: 42 Year
  Sex: Female

DRUGS (11)
  1. DECAPEPTYL (TRIPTORELIN) [Concomitant]
     Active Substance: TRIPTORELIN
     Dosage: 3.75 MG/2 ML POLVERE E SOLVENTE PER SOSPENSIONE
     Route: 030
  2. FULVESTRANT. [Concomitant]
     Active Substance: FULVESTRANT
     Route: 065
  3. TAXOTERE [Concomitant]
     Active Substance: DOCETAXEL
  4. METHOTREXATE. [Concomitant]
     Active Substance: METHOTREXATE
     Indication: BREAST CANCER METASTATIC
     Route: 048
     Dates: start: 20170420, end: 20180426
  5. DIBASE [Concomitant]
     Active Substance: CHOLECALCIFEROL
     Dosage: DERMATOLOGICAL PREPARATION
     Route: 065
  6. LETROZOLE. [Concomitant]
     Active Substance: LETROZOLE
     Route: 065
     Dates: start: 20141016, end: 20160606
  7. HERCEPTIN [Concomitant]
     Active Substance: TRASTUZUMAB
     Indication: BREAST CANCER METASTATIC
     Route: 065
     Dates: start: 20140508, end: 20180412
  8. CYCLOPHOSPHAMIDE. [Concomitant]
     Active Substance: CYCLOPHOSPHAMIDE
     Indication: BREAST CANCER
     Route: 048
     Dates: start: 20170420, end: 20180426
  9. BONDRONAT [Suspect]
     Active Substance: IBANDRONATE SODIUM
     Indication: BREAST CANCER METASTATIC
     Route: 048
     Dates: start: 20141016, end: 20160606
  10. XGEVA [Suspect]
     Active Substance: DENOSUMAB
     Indication: BREAST CANCER METASTATIC
     Route: 058
     Dates: start: 20161001, end: 20180117
  11. AXAGON [Concomitant]
     Active Substance: ESOMEPRAZOLE
     Dosage: 20 MG
     Route: 048

REACTIONS (3)
  - Osteonecrosis of jaw [Not Recovered/Not Resolved]
  - Gingivitis [Not Recovered/Not Resolved]
  - Fistula [Not Recovered/Not Resolved]

NARRATIVE: CASE EVENT DATE: 20180101
